FAERS Safety Report 7369885-3 (Version None)
Quarter: 2011Q1

REPORT INFORMATION
  Report Type: 
  Country: None (occurrence: None)
  Receive Date: 20110323
  Receipt Date: 20110311
  Transmission Date: 20110831
  Serious: Yes (Other)
  Sender: FDA-Public Use
  Company Number: DE-JNJFOC-20110306354

PATIENT
  Age: 40 Year
  Sex: Female
  Weight: 42 kg

DRUGS (2)
  1. DOLORMIN EXTRA [Suspect]
     Route: 048
  2. DOLORMIN EXTRA [Suspect]
     Indication: TOOTHACHE
     Dosage: 800 TO 1200 MG AS NECESSARY FOR FIVE YEARS PRIOR TO 2003, THEN DAILY FOR FIVE YEARS UNTIL 2008
     Route: 048

REACTIONS (7)
  - INTENTIONAL DRUG MISUSE [None]
  - POISONING [None]
  - ULCER [None]
  - BLOOD TEST ABNORMAL [None]
  - ALOPECIA [None]
  - BLOOD ALUMINIUM INCREASED [None]
  - SKIN BURNING SENSATION [None]
